FAERS Safety Report 10956968 (Version 1)
Quarter: 2015Q1

REPORT INFORMATION
  Report Type: Spontaneous
  Country: FR (occurrence: FR)
  Receive Date: 20150326
  Receipt Date: 20150326
  Transmission Date: 20150721
  Serious: Yes (Other)
  Sender: FDA-Public Use
  Company Number: FR-PFIZER INC-2015100668

PATIENT
  Age: 17 Year
  Sex: Female

DRUGS (1)
  1. STEDIRIL [Suspect]
     Active Substance: ETHINYL ESTRADIOL\NORGESTREL
     Indication: DYSMENORRHOEA
     Dosage: UNK
     Route: 048
     Dates: start: 201403, end: 201404

REACTIONS (2)
  - Product use issue [Unknown]
  - Hemiparesis [Recovered/Resolved]

NARRATIVE: CASE EVENT DATE: 201403
